FAERS Safety Report 9215624 (Version 4)
Quarter: 2013Q3

REPORT INFORMATION
  Report Type: Spontaneous
  Country: US (occurrence: US)
  Receive Date: 20130408
  Receipt Date: 20130715
  Transmission Date: 20140515
  Serious: Yes (Hospitalization)
  Sender: FDA-Public Use
  Company Number: US-009507513-1304USA002278

PATIENT
  Age: 60 Year
  Sex: Female
  Weight: 68.93 kg

DRUGS (8)
  1. PEG-INTRON [Suspect]
     Indication: HEPATITIS C
     Dosage: REDIPEN; 50 MCG PER 0.4 ML, QW
     Route: 058
     Dates: start: 20130318
  2. RIBAVIRIN [Suspect]
     Indication: HEPATITIS C
     Dosage: 2 DF, BID
     Route: 048
     Dates: start: 20130318
  3. VICTRELIS [Suspect]
     Indication: HEPATITIS C
     Dosage: 4 DF, Q7H-Q9H
     Route: 048
     Dates: start: 20130415
  4. ALEVE [Concomitant]
  5. INSULIN [Concomitant]
  6. ZOLOFT [Concomitant]
     Indication: DEPRESSION
     Dosage: 50 MG, QD
     Route: 048
  7. LANTUS [Concomitant]
     Indication: DIABETES MELLITUS
     Dosage: 42 UNITS, UNK
     Route: 058
  8. PROAIR (ALBUTEROL SULFATE) [Concomitant]
     Indication: ASTHMA
     Dosage: 2 PUFFS, UNK
     Route: 055

REACTIONS (10)
  - Muscle tightness [Recovered/Resolved]
  - Hypersensitivity [Recovered/Resolved]
  - Constipation [Unknown]
  - Muscle spasms [Unknown]
  - Decreased appetite [Unknown]
  - Nausea [Not Recovered/Not Resolved]
  - Constipation [Not Recovered/Not Resolved]
  - Anxiety [Not Recovered/Not Resolved]
  - Decreased appetite [Not Recovered/Not Resolved]
  - Formication [Unknown]
